FAERS Safety Report 23055667 (Version 2)
Quarter: 2023Q4

REPORT INFORMATION
  Report Type: Report from Study
  Country: US (occurrence: US)
  Receive Date: 20231011
  Receipt Date: 20231214
  Transmission Date: 20240109
  Serious: Yes (Other)
  Sender: FDA-Public Use
  Company Number: US-MYLANLABS-202200752456

PATIENT
  Sex: Female
  Weight: 83 kg

DRUGS (3)
  1. DILANTIN [Suspect]
     Active Substance: PHENYTOIN
     Indication: Seizure
     Dosage: 500 MILLIGRAM (ALTERNATE DAY (TAKE TWO CAPS PO IN AM AND THREE CAPSULES AT NIGHT)
     Route: 048
  2. DILANTIN [Suspect]
     Active Substance: PHENYTOIN
     Indication: Epilepsy
     Dosage: 400 MILLIGRAM, Q2D, (ALTERNATE DAY (ALTERNATING WITH 2 CAPSULES TWICE DAILY)
     Route: 065
  3. DILANTIN [Suspect]
     Active Substance: PHENYTOIN
     Dosage: 200 MILLIGRAM, BID
     Route: 048
     Dates: start: 1968

REACTIONS (3)
  - Seizure [Unknown]
  - Condition aggravated [Unknown]
  - Drug ineffective [Unknown]
